FAERS Safety Report 9280942 (Version 2)
Quarter: 2013Q2

REPORT INFORMATION
  Report Type: Spontaneous
  Country: DK (occurrence: DK)
  Receive Date: 20130509
  Receipt Date: 20130530
  Transmission Date: 20140414
  Serious: Yes (Hospitalization)
  Sender: FDA-Public Use
  Company Number: DK-ELI_LILLY_AND_COMPANY-DK201305001249

PATIENT
  Age: 63 Year
  Sex: Male
  Weight: 95 kg

DRUGS (3)
  1. EFIENT [Suspect]
     Indication: ACUTE CORONARY SYNDROME
     Dosage: 60 MG, SINGLE
     Route: 048
     Dates: start: 20110127, end: 20110127
  2. EFIENT [Suspect]
     Dosage: 10 MG, QD
     Route: 048
  3. ASPIRIN [Concomitant]
     Dosage: 100 MG, QD

REACTIONS (2)
  - Angina unstable [Recovered/Resolved]
  - Coronary artery restenosis [Recovered/Resolved]
